FAERS Safety Report 6136150-1 (Version None)
Quarter: 2009Q1

REPORT INFORMATION
  Report Type: 
  Country: None (occurrence: None)
  Receive Date: 20090330
  Receipt Date: 20090320
  Transmission Date: 20090719
  Serious: Yes (Other)
  Sender: FDA-Public Use
  Company Number: US-AMGEN-US339371

PATIENT
  Sex: Female

DRUGS (3)
  1. NPLATE [Suspect]
     Indication: IDIOPATHIC THROMBOCYTOPENIC PURPURA
     Dates: start: 20081121, end: 20090114
  2. CORTICOSTEROID NOS [Concomitant]
     Dates: start: 20010503
  3. IMMUNOGLOBULINS [Concomitant]
     Dates: start: 20060101

REACTIONS (1)
  - DRUG INEFFECTIVE [None]
